FAERS Safety Report 16049842 (Version 3)
Quarter: 2019Q2

REPORT INFORMATION
  Report Type: Spontaneous
  Country: US (occurrence: US)
  Receive Date: 20190307
  Receipt Date: 20190520
  Transmission Date: 20190711
  Serious: Yes (Hospitalization)
  Sender: FDA-Public Use
  Company Number: US-BIOGEN-2019BI00703981

PATIENT
  Age: 54 Year
  Sex: Female

DRUGS (1)
  1. TYSABRI [Suspect]
     Active Substance: NATALIZUMAB
     Indication: MULTIPLE SCLEROSIS
     Route: 065
     Dates: start: 20190110

REACTIONS (8)
  - Chills [Not Recovered/Not Resolved]
  - White blood cell count abnormal [Unknown]
  - Infusion site haemorrhage [Unknown]
  - Tremor [Unknown]
  - Multiple sclerosis relapse [Not Recovered/Not Resolved]
  - Emotional distress [Unknown]
  - Oropharyngeal pain [Not Recovered/Not Resolved]
  - Fear [Unknown]

NARRATIVE: CASE EVENT DATE: 20190208
